FAERS Safety Report 4786929-3 (Version None)
Quarter: 2005Q3

REPORT INFORMATION
  Report Type: 
  Country: None (occurrence: None)
  Receive Date: 20050930
  Receipt Date: 20050930
  Transmission Date: 20060218
  Serious: Yes (Hospitalization, Other)
  Sender: FDA-Public Use
  Company Number: None

PATIENT
  Sex: Male
  Weight: 81 kg

DRUGS (14)
  1. CYCLOPHOSPHAMIDE [Suspect]
     Indication: ACUTE LYMPHOCYTIC LEUKAEMIA
     Dosage: SEE IMAGE
     Route: 042
     Dates: start: 20050815, end: 20050815
  2. DAUNORUBICIN HCL [Suspect]
     Dosage: SEE IMAGE
     Route: 042
     Dates: start: 20050815
  3. DAUNORUBICIN HCL [Suspect]
     Dosage: SEE IMAGE
     Dates: start: 20050815
  4. VINCRISTINE [Suspect]
     Dosage: SEE IMAGE
     Route: 042
     Dates: start: 20050815
  5. DEXAMETHASONE [Suspect]
     Dosage: SEE IMAGE
     Route: 048
     Dates: start: 20050815
  6. L-ASPARAGINASE [Suspect]
     Dosage: SEE IMAGE
     Route: 058
     Dates: start: 20050815
  7. G-CSF [Suspect]
     Dosage: SEE IMAGE
     Route: 058
     Dates: start: 20050815
  8. ACYCLOVIR [Suspect]
     Dosage: SEE IMAGE
     Route: 048
     Dates: start: 20050815
  9. METHOTREXATE [Suspect]
     Dosage: SEE IMAGE
     Dates: start: 20050815
  10. CYCLOPHOSPHAMIDE [Suspect]
     Dosage: SEE IMAGE
     Route: 042
     Dates: start: 20050815
  11. CYTARABINE [Suspect]
     Dosage: SEE IMAGE
     Route: 042
     Dates: start: 20050815, end: 20050817
  12. L-ASPARAGINASE [Suspect]
     Dosage: SEE IMAGE
     Route: 058
     Dates: start: 20050815
  13. DEXAMETHASONE [Suspect]
     Dosage: SEE IMAGE
     Route: 047
     Dates: start: 20050815
  14. HYDROCORTISONE [Suspect]
     Dosage: SEE IMAGE
     Route: 037
     Dates: start: 20050815

REACTIONS (9)
  - COUGH [None]
  - DYSPNOEA [None]
  - HAEMOPTYSIS [None]
  - LUNG INFILTRATION [None]
  - NEUTROPENIA [None]
  - PNEUMONIA ASPERGILLUS [None]
  - PULMONARY NECROSIS [None]
  - PYREXIA [None]
  - SEPTIC EMBOLUS [None]
